FAERS Safety Report 14936908 (Version 1)
Quarter: 2018Q2

REPORT INFORMATION
  Report Type: Spontaneous
  Country: US (occurrence: US)
  Receive Date: 20180525
  Receipt Date: 20180525
  Transmission Date: 20180711
  Serious: No
  Sender: FDA-Public Use
  Company Number: US-TRIS PHARMA, INC-2018TRISPO00396

PATIENT

DRUGS (1)
  1. HYDROCODONE + APAP [Suspect]
     Active Substance: ACETAMINOPHEN\HYDROCODONE BITARTRATE
     Indication: PAIN
     Dosage: 2 DF (2 TABLETS), AS NEEDED
     Route: 048
     Dates: start: 20180424, end: 20180426

REACTIONS (1)
  - Rash [Not Recovered/Not Resolved]
